FAERS Safety Report 7452269-7 (Version None)
Quarter: 2011Q2

REPORT INFORMATION
  Report Type: 
  Country: None (occurrence: None)
  Receive Date: 20110502
  Receipt Date: 20110420
  Transmission Date: 20111010
  Serious: Yes (Hospitalization, Other)
  Sender: FDA-Public Use
  Company Number: JP-SANOFI-AVENTIS-2009SA002778

PATIENT
  Age: 61 Year
  Sex: Male

DRUGS (6)
  1. CARBOPLATIN [Suspect]
     Route: 065
  2. DOCETAXEL [Suspect]
     Dosage: FIRST COURSE
     Route: 065
  3. DOCETAXEL [Suspect]
     Route: 065
  4. DOCETAXEL [Suspect]
     Dosage: SECOND COURSE
     Route: 065
  5. CARBOPLATIN [Suspect]
     Route: 065
  6. CARBOPLATIN [Suspect]
     Route: 065

REACTIONS (8)
  - HEPATIC AMOEBIASIS [None]
  - PYREXIA [None]
  - DIARRHOEA [None]
  - HAEMATOCHEZIA [None]
  - ENTEROVESICAL FISTULA [None]
  - RECTAL ULCER [None]
  - AMOEBIC COLITIS [None]
  - ABDOMINAL PAIN LOWER [None]
